FAERS Safety Report 13019197 (Version 1)
Quarter: 2016Q4

REPORT INFORMATION
  Report Type: Spontaneous
  Country: US (occurrence: US)
  Receive Date: 20161212
  Receipt Date: 20161212
  Transmission Date: 20170207
  Serious: No
  Sender: FDA-Public Use
  Company Number: US-ROCHE-1762404

PATIENT
  Sex: Female
  Weight: 67.59 kg

DRUGS (16)
  1. ACETAMINOPHEN. [Concomitant]
     Active Substance: ACETAMINOPHEN
     Indication: PAIN
     Dosage: WAS TAKING HYDROCODONE/ACETAMINOPHEN BUT THEN WAS PUT ON OXYCODONE/ACETAMINOPHEN 5-325, 1-2 TABLETS
     Route: 065
  2. TRAZODONE HYDROCHLORIDE. [Concomitant]
     Active Substance: TRAZODONE HYDROCHLORIDE
     Dosage: 1 TABLET BY MOUTH
     Route: 048
  3. OXYCODONE [Concomitant]
     Active Substance: OXYCODONE
     Dosage: 5 TO 325 1 TO 2 TABLETS BY MOUTH EVERY 4 HOURS AS NEEDED FOR MODERATE TO SEVERE PAINON 15/APR/2016 A
     Route: 065
  4. LYRICA [Suspect]
     Active Substance: PREGABALIN
     Indication: FIBROMYALGIA
     Dosage: BY MOUTH
     Route: 048
     Dates: start: 201603
  5. LEVOTHYROXINE SODIUM. [Concomitant]
     Active Substance: LEVOTHYROXINE SODIUM
     Dosage: ONE TABLET DAILY BY MOUTH
     Route: 048
     Dates: start: 2014
  6. NASACORT [Concomitant]
     Active Substance: TRIAMCINOLONE ACETONIDE
     Indication: HYPERSENSITIVITY
     Dosage: TWO PUFFS DAILY IN EACH NOSTRIL
     Route: 065
     Dates: start: 2014
  7. BENADRYL [Concomitant]
     Active Substance: DIPHENHYDRAMINE HYDROCHLORIDE
     Indication: HYPERSENSITIVITY
     Dosage: TWO TABLETS DAILY BY MOUTH?STARTED TAKING THIS A LONG TIME AGO
     Route: 048
  8. DIAZEPAM. [Suspect]
     Active Substance: DIAZEPAM
     Indication: ANXIETY
     Dosage: BY MOUTH?REPORTS IT SAYS 1 TABLET THREE TIMES DAILY, BUT SHE ONLY TOOK IT AS NEEDED
     Route: 048
     Dates: start: 2015
  9. SUDAFED (UNITED STATES) [Concomitant]
     Indication: HYPERSENSITIVITY
     Dosage: 2 TABLETS BY MOUTH?HAS BEEN ON THIS FOR YEARS
     Route: 048
  10. DIPHENOXYLATE [Concomitant]
     Active Substance: DIPHENOXYLATE
     Indication: DIARRHOEA
     Dosage: 2.5-0.025MG, 1-2 ONLY AS NEEDED BY MOUTH?STARTED TAKING THIS A LONG TIME AGO
     Route: 065
  11. ATROPINE. [Concomitant]
     Active Substance: ATROPINE
     Indication: DIARRHOEA
     Dosage: 2.5-0.025MG, 1-2 ONLY AS NEEDED BY MOUTH?STARTED TAKING THIS A LONG TIME AGO
     Route: 065
  12. LOPERAMIDE HYDROCHLORIDE. [Concomitant]
     Active Substance: LOPERAMIDE HYDROCHLORIDE
     Indication: IRRITABLE BOWEL SYNDROME
     Dosage: 1-2 PILLS AS NEEDED BY MOUTH?STARTED TAKING THIS A LONG TIME AGO
     Route: 065
  13. DIAZEPAM. [Suspect]
     Active Substance: DIAZEPAM
     Indication: DEPRESSION
  14. LYRICA [Suspect]
     Active Substance: PREGABALIN
     Indication: BACK PAIN
  15. TIZANIDINE HCL [Concomitant]
     Active Substance: TIZANIDINE HYDROCHLORIDE
     Dosage: TWO TABLETS DAILY AS NEEDED BY MOUTH?PREVIOUSLY TOOK SOMA BUT THEN BEGAN TAKING TIZANIDINE HCL BECAU
     Route: 048
     Dates: start: 2015
  16. LYRICA [Suspect]
     Active Substance: PREGABALIN
     Indication: NEURALGIA

REACTIONS (5)
  - Intervertebral disc degeneration [Not Recovered/Not Resolved]
  - Inappropriate schedule of drug administration [Unknown]
  - Weight increased [Not Recovered/Not Resolved]
  - Therapeutic response decreased [Unknown]
  - Fall [Unknown]
